FAERS Safety Report 6853632-5 (Version None)
Quarter: 2010Q3

REPORT INFORMATION
  Report Type: 
  Country: None (occurrence: None)
  Receive Date: 20100717
  Receipt Date: 20080128
  Transmission Date: 20110219
  Serious: Yes (Hospitalization, Other)
  Sender: FDA-Public Use
  Company Number: US-PFIZER INC-2007104587

PATIENT
  Sex: Male
  Weight: 77.1 kg

DRUGS (2)
  1. CHANTIX [Suspect]
     Indication: EX-TOBACCO USER
     Dates: start: 20070801, end: 20071205
  2. ALL OTHER THERAPEUTIC PRODUCTS [Interacting]
     Indication: HIV TEST POSITIVE

REACTIONS (9)
  - ABNORMAL DREAMS [None]
  - ANXIETY [None]
  - DEPRESSION [None]
  - DRUG INTERACTION [None]
  - DYSPNOEA [None]
  - EMOTIONAL DISORDER [None]
  - HYPERSOMNIA [None]
  - PHYSICAL ASSAULT [None]
  - SUICIDE ATTEMPT [None]
